FAERS Safety Report 6740376-3 (Version None)
Quarter: 2010Q2

REPORT INFORMATION
  Report Type: 
  Country: None (occurrence: None)
  Receive Date: 20100521
  Receipt Date: 20100520
  Transmission Date: 20101027
  Serious: Yes (Hospitalization)
  Sender: FDA-Public Use
  Company Number: WAESA 1004USA02580

PATIENT
  Age: 76 Year
  Sex: Male

DRUGS (5)
  1. ZETIA [Suspect]
     Indication: TYPE IIA HYPERLIPIDAEMIA
     Dosage: 10 MG/ DAILY
     Route: 048
     Dates: start: 20071029
  2. ASPIRIN [Concomitant]
  3. LIVALO [Concomitant]
  4. NORVASC [Concomitant]
  5. ROSUVASTATIN CALCIUM [Concomitant]

REACTIONS (1)
  - ANGINA PECTORIS [None]
